FAERS Safety Report 7099750-0 (Version None)
Quarter: 2010Q4

REPORT INFORMATION
  Report Type: 
  Country: None (occurrence: None)
  Receive Date: 20101104
  Receipt Date: 20101025
  Transmission Date: 20110411
  Serious: Yes (Other)
  Sender: FDA-Public Use
  Company Number: 2010100042

PATIENT
  Age: 30 Year
  Sex: Female

DRUGS (6)
  1. CARISOPRODOL [Suspect]
     Dosage: ORAL
     Route: 048
  2. PHENOBARBITAL TAB [Suspect]
  3. CLONAZEPAM [Concomitant]
  4. QUETIAPINE FUMARATE [Concomitant]
  5. METHADONE HCL [Concomitant]
  6. PROMETHAZINE [Concomitant]

REACTIONS (10)
  - GAZE PALSY [None]
  - GRAND MAL CONVULSION [None]
  - HYPOXIA [None]
  - MYDRIASIS [None]
  - OCULOCEPHALOGYRIC REFLEX ABSENT [None]
  - OVERDOSE [None]
  - PUPILLARY REFLEX IMPAIRED [None]
  - TACHYCARDIA [None]
  - TACHYPNOEA [None]
  - UNRESPONSIVE TO STIMULI [None]
